FAERS Safety Report 18731784 (Version 1)
Quarter: 2021Q1

REPORT INFORMATION
  Report Type: Spontaneous
  Country: US (occurrence: US)
  Receive Date: 20210112
  Receipt Date: 20210112
  Transmission Date: 20210419
  Serious: Yes (Death, Hospitalization)
  Sender: FDA-Public Use
  Company Number: US-PFIZER INC-2021014764

PATIENT
  Age: 23 Year
  Sex: Female

DRUGS (10)
  1. FENTANYL CITRATE. [Suspect]
     Active Substance: FENTANYL CITRATE
     Dosage: UNK
     Route: 065
  2. GABAPENTIN. [Suspect]
     Active Substance: GABAPENTIN
     Dosage: UNK
     Route: 065
  3. COCAINE [Suspect]
     Active Substance: COCAINE
     Dosage: UNK
     Route: 065
  4. FENTANYL. [Suspect]
     Active Substance: FENTANYL
     Dosage: UNK, (INHALATION/NASAL)
     Route: 055
  5. COCAINE [Suspect]
     Active Substance: COCAINE
     Dosage: UNK, (INHALATION/NASAL)
     Route: 055
  6. METHAMPHETAMINE [METAMFETAMINE] [Suspect]
     Active Substance: METHAMPHETAMINE
     Dosage: UNK
     Route: 065
  7. METHAMPHETAMINE [METAMFETAMINE] [Suspect]
     Active Substance: METHAMPHETAMINE
     Dosage: UNK, (INHALATION/NASAL)
     Route: 055
  8. CARFENTANIL [Suspect]
     Active Substance: CARFENTANIL
     Dosage: UNK, (INHALATION/NASAL)
     Route: 055
  9. CARFENTANIL [Suspect]
     Active Substance: CARFENTANIL
     Dosage: UNK
     Route: 065
  10. GABAPENTIN. [Suspect]
     Active Substance: GABAPENTIN
     Dosage: UNK, (INHALATION/NASAL)
     Route: 055

REACTIONS (3)
  - Respiratory arrest [Fatal]
  - Cardiac arrest [Fatal]
  - Drug abuse [Fatal]

NARRATIVE: CASE EVENT DATE: 2019
